FAERS Safety Report 22606624 (Version 1)
Quarter: 2023Q2

REPORT INFORMATION
  Report Type: Spontaneous
  Country: US (occurrence: US)
  Receive Date: 20230615
  Receipt Date: 20230615
  Transmission Date: 20230722
  Serious: No
  Sender: FDA-Public Use
  Company Number: CID000000000036362

PATIENT
  Age: 49 Year
  Sex: Female
  Weight: 68.04 kg

DRUGS (3)
  1. COPAXONE [Suspect]
     Active Substance: GLATIRAMER ACETATE
     Indication: Multiple sclerosis
     Dosage: 20 MG PER DAY
  2. COPAXONE [Suspect]
     Active Substance: GLATIRAMER ACETATE
     Dosage: 17.1429 MILLIGRAM DAILY; 40 MG/ML
  3. NEXIUM [Concomitant]
     Active Substance: ESOMEPRAZOLE MAGNESIUM
     Indication: Product used for unknown indication
     Dosage: 40 MG
     Route: 065

REACTIONS (13)
  - Chest pain [Recovered/Resolved]
  - Back pain [Recovered/Resolved]
  - Inappropriate schedule of product administration [Unknown]
  - Adverse drug reaction [Unknown]
  - Dizziness [Unknown]
  - Burning sensation [Unknown]
  - Hypertension [Unknown]
  - Erythema [Unknown]
  - Headache [Unknown]
  - Autoscopy [Unknown]
  - Feeling abnormal [Unknown]
  - Dysgeusia [Unknown]
  - Product use issue [Unknown]

NARRATIVE: CASE EVENT DATE: 20230517
